FAERS Safety Report 26213565 (Version 1)
Quarter: 2025Q4

REPORT INFORMATION
  Report Type: Spontaneous
  Country: US (occurrence: US)
  Receive Date: 20251230
  Receipt Date: 20251230
  Transmission Date: 20260119
  Serious: Yes (Life-Threatening)
  Sender: PFIZER
  Company Number: US-PFIZER INC-PV202500146727

PATIENT
  Age: 35 Year
  Sex: Female

DRUGS (2)
  1. GEMCITABINE HYDROCHLORIDE [Suspect]
     Active Substance: GEMCITABINE HYDROCHLORIDE
     Indication: NUT midline carcinoma
     Dosage: 1 CYCLE
  2. CAPECITABINE [Suspect]
     Active Substance: CAPECITABINE
     Indication: NUT midline carcinoma
     Dosage: 1 CYCLE

REACTIONS (2)
  - Drug intolerance [Unknown]
  - Off label use [Unknown]
